FAERS Safety Report 7673688-X (Version None)
Quarter: 2011Q3

REPORT INFORMATION
  Report Type: 
  Country: None (occurrence: None)
  Receive Date: 20110810
  Receipt Date: 20110727
  Transmission Date: 20111222
  Serious: Yes (Other)
  Sender: FDA-Public Use
  Company Number: US-US-EMD SERONO, INC.-7036048

PATIENT
  Sex: Female

DRUGS (2)
  1. REBIF [Suspect]
     Indication: MULTIPLE SCLEROSIS
     Route: 058
     Dates: start: 20100917, end: 20110101
  2. UNSPECIFIED MEDICATIONS [Concomitant]

REACTIONS (3)
  - DEPRESSION [None]
  - AGITATION [None]
  - SUICIDAL BEHAVIOUR [None]
